FAERS Safety Report 12621204 (Version 1)
Quarter: 2016Q3

REPORT INFORMATION
  Report Type: Spontaneous
  Country: US (occurrence: US)
  Receive Date: 20160804
  Receipt Date: 20160804
  Transmission Date: 20161109
  Serious: No
  Sender: FDA-Public Use
  Company Number: US-BAYER-2016-149513

PATIENT

DRUGS (3)
  1. ALEVE [Suspect]
     Active Substance: NAPROXEN SODIUM
     Indication: BACK PAIN
     Dosage: 2 DF, OM
  2. ALEVE [Suspect]
     Active Substance: NAPROXEN SODIUM
     Indication: SHOCK
  3. ALEVE [Suspect]
     Active Substance: NAPROXEN SODIUM
     Indication: HYPOAESTHESIA

REACTIONS (1)
  - Therapeutic response unexpected [None]
